FAERS Safety Report 9774625 (Version 2)
Quarter: 2013Q4

REPORT INFORMATION
  Report Type: Spontaneous
  Country: US (occurrence: US)
  Receive Date: 20131220
  Receipt Date: 20131230
  Transmission Date: 20140711
  Serious: Yes (Hospitalization)
  Sender: FDA-Public Use
  Company Number: US-SA-2013SA133048

PATIENT
  Age: 17 Month
  Sex: Male
  Weight: 13 kg

DRUGS (29)
  1. DDAVP [Suspect]
     Indication: DIABETES INSIPIDUS
     Route: 048
     Dates: start: 20131127
  2. DDAVP [Suspect]
     Indication: HYPERNATRAEMIA
     Route: 048
     Dates: start: 20131127
  3. DDAVP [Suspect]
     Indication: DIABETES INSIPIDUS
     Route: 045
  4. DDAVP [Suspect]
     Indication: HYPERNATRAEMIA
     Route: 045
  5. SABRIL [Suspect]
     Indication: INFANTILE SPASMS
     Route: 048
     Dates: start: 20131008
  6. SABRIL [Suspect]
     Indication: INFANTILE SPASMS
     Route: 065
  7. SABRIL [Suspect]
     Indication: INFANTILE SPASMS
     Route: 065
  8. KEPPRA [Concomitant]
     Indication: INFANTILE SPASMS
     Route: 048
     Dates: start: 201304, end: 201305
  9. KEPPRA [Concomitant]
     Indication: TONIC CONVULSION
     Route: 048
     Dates: start: 201304, end: 201305
  10. KEPPRA [Concomitant]
     Indication: INFANTILE SPASMS
     Route: 048
     Dates: start: 201306
  11. KEPPRA [Concomitant]
     Indication: TONIC CONVULSION
     Route: 048
     Dates: start: 201306
  12. TOPAMAX [Concomitant]
     Indication: INFANTILE SPASMS
     Route: 048
     Dates: start: 201307
  13. TOPAMAX [Concomitant]
     Indication: TONIC CONVULSION
     Route: 048
     Dates: start: 201307
  14. TOPAMAX [Concomitant]
     Indication: INFANTILE SPASMS
     Route: 065
  15. TOPAMAX [Concomitant]
     Indication: TONIC CONVULSION
     Route: 065
  16. PREDNISOLONE [Concomitant]
     Indication: INFANTILE SPASMS
     Route: 048
     Dates: start: 201308, end: 201310
  17. PREDNISOLONE [Concomitant]
     Indication: TONIC CONVULSION
     Route: 048
     Dates: start: 201308, end: 201310
  18. POLYETHYLENE GLYCOL [Concomitant]
     Indication: CONSTIPATION
     Dosage: AS NEEDED
     Route: 048
  19. ZONISAMIDE [Concomitant]
     Indication: PRODUCT USED FOR UNKNOWN INDICATION
     Route: 048
  20. ACETAMINOPHEN [Concomitant]
     Indication: PAIN
     Dosage: ROUTE - ORAL AND RECTAL?FREQUENCY - AS NEEDED.
  21. ACETAMINOPHEN [Concomitant]
     Indication: PYREXIA
     Dosage: ROUTE - ORAL AND RECTAL?FREQUENCY - AS NEEDED.
  22. DIAZEPAM [Concomitant]
     Indication: CONVULSION
     Route: 054
  23. DIPHENHYDRAMINE [Concomitant]
     Indication: RASH
     Route: 048
  24. DIPHENHYDRAMINE [Concomitant]
     Indication: PRURITUS
     Route: 048
  25. IBUPROFEN [Concomitant]
     Indication: PAIN
     Route: 048
  26. IBUPROFEN [Concomitant]
     Indication: PYREXIA
     Route: 048
  27. ONDANSETRON [Concomitant]
     Indication: NAUSEA
     Route: 048
  28. ONDANSETRON [Concomitant]
     Indication: VOMITING
     Route: 048
  29. OXYCODONE [Concomitant]
     Indication: PAIN
     Route: 048

REACTIONS (9)
  - Pain [Recovered/Resolved]
  - Constipation [Recovered/Resolved]
  - Decreased appetite [Recovering/Resolving]
  - Diabetes insipidus [Recovering/Resolving]
  - Muscle spasms [Unknown]
  - Myoclonic epilepsy [Unknown]
  - Hyponatraemia [Recovered/Resolved]
  - Vomiting [Unknown]
  - Ventriculo-peritoneal shunt [Recovered/Resolved]
